FAERS Safety Report 4544923-1 (Version None)
Quarter: 2005Q1

REPORT INFORMATION
  Report Type: 
  Country: None (occurrence: None)
  Receive Date: 20050103
  Receipt Date: 20050103
  Transmission Date: 20050727
  Serious: Yes (Hospitalization)
  Sender: FDA-Public Use
  Company Number: None

PATIENT
  Sex: Male
  Weight: 79 kg

DRUGS (2)
  1. AUGMENTIN '875' [Suspect]
     Indication: DIABETIC FOOT
     Dosage: 875MG  PO BID X 30D
     Route: 048
     Dates: start: 20030423, end: 20030710
  2. LOVASTATIN [Concomitant]

REACTIONS (4)
  - ABDOMINAL PAIN [None]
  - LIVER FUNCTION TEST ABNORMAL [None]
  - NAUSEA [None]
  - VOMITING [None]
